FAERS Safety Report 22218274 (Version 1)
Quarter: 2023Q2

REPORT INFORMATION
  Report Type: Report from Study
  Country: KR (occurrence: KR)
  Receive Date: 20230417
  Receipt Date: 20230417
  Transmission Date: 20230722
  Serious: Yes (Hospitalization)
  Sender: FDA-Public Use
  Company Number: KR-MYLANLABS-2023M1038425

PATIENT
  Age: 70 Year
  Sex: Female
  Weight: 73 kg

DRUGS (7)
  1. ATORVASTATIN [Suspect]
     Active Substance: ATORVASTATIN
     Indication: Lipid metabolism disorder
     Dosage: 10 MILLIGRAM, QD
     Route: 048
     Dates: start: 20190528
  2. CELEBREX [Concomitant]
     Active Substance: CELECOXIB
     Indication: Rheumatoid arthritis
     Dosage: 200 MILLIGRAM, QD
     Route: 048
     Dates: start: 20180529
  3. EPERISONE HYDROCHLORIDE [Concomitant]
     Active Substance: EPERISONE HYDROCHLORIDE
     Indication: Bone density abnormal
     Dosage: 50 MILLIGRAM
     Route: 048
     Dates: start: 20180529
  4. FOLIC ACID [Concomitant]
     Active Substance: FOLIC ACID
     Indication: Anaemia folate deficiency
     Dosage: 1 MILLIGRAM, QD
     Route: 048
     Dates: start: 20180529
  5. METHOTREXATE [Concomitant]
     Active Substance: METHOTREXATE
     Indication: Rheumatoid arthritis
     Dosage: 2.5 MILLIGRAM, QD
     Route: 048
     Dates: start: 20180529
  6. PREGABALIN [Concomitant]
     Active Substance: PREGABALIN
     Indication: Rheumatoid arthritis
     Dosage: 75 MILLIGRAM, QD
     Route: 048
     Dates: start: 20190227
  7. CALCITRIOL [Concomitant]
     Active Substance: CALCITRIOL
     Indication: Bone density abnormal
     Dosage: UNK (BID)
     Route: 048
     Dates: start: 20190529

REACTIONS (1)
  - Spinal stenosis [Recovered/Resolved]

NARRATIVE: CASE EVENT DATE: 20190912
